FAERS Safety Report 7321817-X (Version None)
Quarter: 2011Q1

REPORT INFORMATION
  Report Type: 
  Country: None (occurrence: None)
  Receive Date: 20110217
  Receipt Date: 20100910
  Transmission Date: 20110831
  Serious: No
  Sender: FDA-Public Use
  Company Number: USA/USA/10/0015744

PATIENT
  Age: 42 Year
  Sex: Male
  Weight: 70.3075 kg

DRUGS (4)
  1. OMEPRAZOLE [Concomitant]
  2. ONDANSETRON [Suspect]
     Indication: GASTROOESOPHAGEAL REFLUX DISEASE
     Dosage: 4 MG, 1 IN 4 HR, PER ORAL
     Route: 048
     Dates: start: 20100830, end: 20100910
  3. ONDANSETRON [Suspect]
     Indication: NAUSEA
     Dosage: 4 MG, 1 IN 4 HR, PER ORAL
     Route: 048
     Dates: start: 20100830, end: 20100910
  4. ONDANSETRON [Suspect]
     Indication: VOMITING
     Dosage: 4 MG, 1 IN 4 HR, PER ORAL
     Route: 048
     Dates: start: 20100830, end: 20100910

REACTIONS (1)
  - DRUG SCREEN POSITIVE [None]
